FAERS Safety Report 13998314 (Version 2)
Quarter: 2017Q4

REPORT INFORMATION
  Report Type: Spontaneous
  Country: US (occurrence: US)
  Receive Date: 20170921
  Receipt Date: 20171030
  Transmission Date: 20180321
  Serious: No
  Sender: FDA-Public Use
  Company Number: US-PFIZER INC-2017405385

PATIENT
  Age: 75 Year
  Sex: Female
  Weight: 84 kg

DRUGS (4)
  1. AMLODIPINE BENAZP [Concomitant]
     Indication: HYPERTENSION
     Dosage: 1 DF, DAILY, [AMLODIPINE 10MG]/ [BENAZEPRIL 40MG]ONE CAPSULE A DAY
  2. NOVOLIN 70/30 [Concomitant]
     Active Substance: INSULIN HUMAN
     Indication: DIABETES MELLITUS
     Dosage: 25 UNITS IN THE MORNING AND AT NIGHT
  3. METFORMIN [Concomitant]
     Active Substance: METFORMIN HYDROCHLORIDE
     Indication: DIABETES MELLITUS
     Dosage: 500 MG, 2X/DAY
  4. ADVIL [Suspect]
     Active Substance: IBUPROFEN
     Indication: PAIN
     Dosage: 400 MG, EVERY 4 HRS
     Route: 048
     Dates: start: 20170916

REACTIONS (4)
  - Drug effect incomplete [Not Recovered/Not Resolved]
  - Overdose [Not Recovered/Not Resolved]
  - Condition aggravated [Not Recovered/Not Resolved]
  - Pain [Not Recovered/Not Resolved]

NARRATIVE: CASE EVENT DATE: 20170916
